FAERS Safety Report 7417096-5 (Version None)
Quarter: 2011Q2

REPORT INFORMATION
  Report Type: 
  Country: None (occurrence: None)
  Receive Date: 20110412
  Receipt Date: 20110412
  Transmission Date: 20111010
  Serious: No
  Sender: FDA-Public Use
  Company Number: None

PATIENT
  Sex: Female
  Weight: 50.3493 kg

DRUGS (1)
  1. ALENDRONATE SODIUM [Suspect]
     Indication: OSTEOPOROSIS
     Dosage: 70 MG TAB 1 TABLET A WEEK
     Dates: start: 20110213, end: 20110320

REACTIONS (6)
  - ARTHRALGIA [None]
  - MIDDLE INSOMNIA [None]
  - PAIN [None]
  - ABDOMINAL DISCOMFORT [None]
  - PAIN IN JAW [None]
  - FEELING HOT [None]
